FAERS Safety Report 4287630-5 (Version None)
Quarter: 2004Q1

REPORT INFORMATION
  Report Type: 
  Country: None (occurrence: None)
  Receive Date: 20040209
  Receipt Date: 20030808
  Transmission Date: 20041129
  Serious: No
  Sender: FDA-Public Use
  Company Number: US-GLAXOSMITHKLINE-A0420615A

PATIENT
  Sex: Female

DRUGS (2)
  1. PAXIL [Suspect]
     Dosage: 12.5MG PER DAY
     Route: 048
  2. PROCID [Concomitant]

REACTIONS (9)
  - AGEUSIA [None]
  - ANOREXIA [None]
  - ANXIETY [None]
  - BLADDER PAIN [None]
  - CYSTITIS INTERSTITIAL [None]
  - JAW DISORDER [None]
  - MENTAL DISORDER [None]
  - MUSCLE SPASMS [None]
  - SUICIDAL IDEATION [None]
